FAERS Safety Report 6524447-2 (Version None)
Quarter: 2010Q1

REPORT INFORMATION
  Report Type: 
  Country: None (occurrence: None)
  Receive Date: 20100104
  Receipt Date: 20091203
  Transmission Date: 20100710
  Serious: No
  Sender: FDA-Public Use
  Company Number: US-BAYER-200917441BCC

PATIENT
  Age: 81 Year
  Sex: Female
  Weight: 39 kg

DRUGS (5)
  1. ALEVE (CAPLET) [Suspect]
     Indication: BACK PAIN
     Dosage: CONSUMER WOULD TAKE 1 OR 2 CAPLETS
     Route: 048
     Dates: start: 20090101
  2. VERAPAMIL [Concomitant]
     Route: 065
  3. COZAAR [Concomitant]
     Route: 065
  4. WALGREENS MULTIVITAMIN [Concomitant]
     Route: 065
  5. GENERIC 81MG ASPIRIN [Concomitant]
     Route: 065

REACTIONS (1)
  - NAUSEA [None]
